FAERS Safety Report 12001689 (Version 1)
Quarter: 2016Q1

REPORT INFORMATION
  Report Type: Spontaneous
  Country: US (occurrence: US)
  Receive Date: 20160204
  Receipt Date: 20160204
  Transmission Date: 20160526
  Serious: No
  Sender: FDA-Public Use
  Company Number: US-PERRIGO-15US006183

PATIENT
  Age: 88 Year
  Sex: Female
  Weight: 53.52 kg

DRUGS (10)
  1. BAYER ASPIRIN [Concomitant]
     Active Substance: ASPIRIN
     Indication: ROUTINE HEALTH MAINTENANCE
     Dosage: 81 MG, QOD
     Route: 048
  2. CHRONIC RENAL SUPORT FORMULA [Suspect]
     Active Substance: UNSPECIFIED INGREDIENT
     Indication: SUPPLEMENTATION THERAPY
  3. KLOR-CON [Concomitant]
     Active Substance: POTASSIUM CHLORIDE
     Indication: MUSCLE SPASMS
     Dosage: UNK
     Route: 065
  4. ATORVASTATIN [Concomitant]
     Active Substance: ATORVASTATIN
     Indication: BLOOD CHOLESTEROL INCREASED
     Dosage: 40 MG, UNK
     Route: 065
  5. BIEST 50/50 [Suspect]
     Active Substance: ESTRADIOL\ESTRIOL
     Indication: HORMONE THERAPY
     Dosage: ONE SUPPOSITORY, QHS
     Route: 067
     Dates: start: 201505, end: 201505
  6. ZHI BAI DI HUANG WAN /07858301/ [Suspect]
     Active Substance: HERBALS
     Indication: HORMONE THERAPY
     Dosage: THREE TABLETS, TID
     Route: 048
     Dates: start: 201505, end: 201505
  7. METOPROLOL. [Concomitant]
     Active Substance: METOPROLOL
     Indication: HYPERTENSION
     Dosage: 25 MG, HALF TABLET
     Route: 065
  8. LOSARTAN POTASSIUM. [Concomitant]
     Active Substance: LOSARTAN POTASSIUM
     Indication: HYPERTENSION
     Dosage: UNK
     Route: 065
  9. VITAMINS NOS [Concomitant]
     Active Substance: VITAMINS
     Indication: SUPPLEMENTATION THERAPY
     Dosage: UNK
     Route: 048
  10. IBUPROFEN. [Suspect]
     Active Substance: IBUPROFEN
     Indication: PROPHYLAXIS
     Dosage: 400 MG, PRN
     Dates: start: 201505, end: 201505

REACTIONS (3)
  - Off label use [Recovered/Resolved]
  - Drug interaction [Recovered/Resolved]
  - Haemorrhage [Recovered/Resolved]

NARRATIVE: CASE EVENT DATE: 201505
